FAERS Safety Report 11929707 (Version 1)
Quarter: 2016Q1

REPORT INFORMATION
  Report Type: Spontaneous
  Country: US (occurrence: None)
  Receive Date: 20160119
  Receipt Date: 20160119
  Transmission Date: 20160526
  Serious: Yes (Disabling)
  Sender: FDA-Public Use
  Company Number: None

PATIENT
  Age: 27 Year
  Sex: Female
  Weight: 58.97 kg

DRUGS (10)
  1. MAGNESIUM [Concomitant]
     Active Substance: MAGNESIUM
  2. L-ARGININE [Concomitant]
     Active Substance: ARGININE
  3. FISH OIL [Concomitant]
     Active Substance: FISH OIL
  4. NUVARING [Suspect]
     Active Substance: ETHINYL ESTRADIOL\ETONOGESTREL
     Dosage: 1 RING ONCE A MONTH VAGINAL
     Route: 067
  5. COQ10 [Concomitant]
     Active Substance: UBIDECARENONE
  6. DONG QUAI [Concomitant]
     Active Substance: ANGELICA SINENSIS ROOT
  7. FOLLISTIM [Concomitant]
     Active Substance: FOLLITROPIN
  8. PRENATAL [Concomitant]
     Active Substance: VITAMINS
  9. MACA ROOT [Concomitant]
  10. OVIDREL [Concomitant]
     Active Substance: CHORIOGONADOTROPIN ALFA

REACTIONS (3)
  - Amenorrhoea [None]
  - Endometrial atrophy [None]
  - Infertility [None]

NARRATIVE: CASE EVENT DATE: 20131128
